FAERS Safety Report 21266497 (Version 1)
Quarter: 2022Q3

REPORT INFORMATION
  Report Type: Spontaneous
  Country: US (occurrence: None)
  Receive Date: 20220826
  Receipt Date: 20220826
  Transmission Date: 20221026
  Serious: No
  Sender: FDA-Public Use
  Company Number: None

PATIENT
  Age: 15 Year
  Sex: Female

DRUGS (1)
  1. BENLYSTA [Suspect]
     Active Substance: BELIMUMAB
     Route: 058

REACTIONS (3)
  - Therapy interrupted [None]
  - Foot operation [None]
  - Abdominal infection [None]

NARRATIVE: CASE EVENT DATE: 20220807
